FAERS Safety Report 4708868-6 (Version None)
Quarter: 2005Q3

REPORT INFORMATION
  Report Type: 
  Country: None (occurrence: None)
  Receive Date: 20050705
  Receipt Date: 20050620
  Transmission Date: 20060218
  Serious: Yes (Hospitalization)
  Sender: FDA-Public Use
  Company Number: 2005AL002354

PATIENT
  Age: 70 Year
  Sex: Male

DRUGS (6)
  1. SERAX [Suspect]
     Indication: SLEEP DISORDER
     Dosage: 10 MG, QD; PO
     Route: 048
     Dates: start: 20050516, end: 20050516
  2. DIGOXIN [Concomitant]
  3. EQUANIL [Concomitant]
  4. HALOPERIDOL [Concomitant]
  5. ZOLOFT [Concomitant]
  6. ISOPHANE INSULIN [Concomitant]

REACTIONS (3)
  - DEPRESSED LEVEL OF CONSCIOUSNESS [None]
  - SOMNOLENCE [None]
  - THERAPEUTIC RESPONSE INCREASED [None]
